FAERS Safety Report 4602959-6 (Version None)
Quarter: 2005Q1

REPORT INFORMATION
  Report Type: 
  Country: None (occurrence: None)
  Receive Date: 20050307
  Receipt Date: 20050301
  Transmission Date: 20050727
  Serious: Yes (Disabling)
  Sender: FDA-Public Use
  Company Number: K200500290

PATIENT
  Age: 67 Year
  Sex: Female

DRUGS (5)
  1. ALTACE [Suspect]
     Dosage: 2.5MG, QD; ORAL
     Route: 048
     Dates: start: 20050609
  2. AMIODARONE HYDROCHLORIDE [Suspect]
     Dosage: 1G, QD; ORAL
     Route: 048
     Dates: start: 20040421
  3. SILOSTAR (NEBIVOLOL) 2.5MG [Suspect]
     Dosage: 2.5MG, QD; ORAL
     Route: 048
     Dates: start: 20040501, end: 20040613
  4. NITRODERM [Concomitant]
  5. CARDURAN NEO (DOXAZOSIN MESILATE) [Concomitant]

REACTIONS (1)
  - BRADYCARDIA [None]
